FAERS Safety Report 7459909-7 (Version None)
Quarter: 2011Q2

REPORT INFORMATION
  Report Type: 
  Country: None (occurrence: None)
  Receive Date: 20110505
  Receipt Date: 20110503
  Transmission Date: 20111010
  Serious: Yes (Hospitalization)
  Sender: FDA-Public Use
  Company Number: NL-MEDIMMUNE-MEDI-0013032

PATIENT
  Sex: Female
  Weight: 1.86 kg

DRUGS (2)
  1. SYNAGIS [Suspect]
     Route: 030
     Dates: start: 20110330, end: 20110330
  2. SYNAGIS [Suspect]
     Route: 030
     Dates: start: 20101013, end: 20110302

REACTIONS (3)
  - OROPHARYNGEAL BLISTERING [None]
  - DEHYDRATION [None]
  - ORAL HERPES [None]
